FAERS Safety Report 25109135 (Version 1)
Quarter: 2025Q1

REPORT INFORMATION
  Report Type: Other
  Country: US (occurrence: US)
  Receive Date: 20250322
  Receipt Date: 20250322
  Transmission Date: 20250409
  Serious: Yes (Other)
  Sender: LYNE LABORATORIES
  Company Number: US-Lyne Laboratories Inc.-2173450

PATIENT
  Age: 76 Year
  Sex: Male

DRUGS (3)
  1. TRIAMCINOLONE ACETONIDE [Suspect]
     Active Substance: TRIAMCINOLONE ACETONIDE
     Indication: Cystoid macular oedema
  2. PREDNISONE [Suspect]
     Active Substance: PREDNISONE
  3. IBUPROFEN [Concomitant]
     Active Substance: IBUPROFEN

REACTIONS (5)
  - Infective scleritis [Recovering/Resolving]
  - Product use in unapproved indication [Unknown]
  - Aspergillus infection [Recovering/Resolving]
  - Mycotic endophthalmitis [Recovering/Resolving]
  - Condition aggravated [Recovering/Resolving]
